FAERS Safety Report 9403307 (Version 1)
Quarter: 2013Q3

REPORT INFORMATION
  Report Type: Spontaneous
  Country: US (occurrence: US)
  Receive Date: 20130716
  Receipt Date: 20130716
  Transmission Date: 20140515
  Serious: No
  Sender: FDA-Public Use
  Company Number: US-TEVA-419483USA

PATIENT
  Sex: Female
  Weight: 59.02 kg

DRUGS (4)
  1. PLAN B ONE-STEP [Suspect]
     Indication: POST COITAL CONTRACEPTION
     Dosage: 1.5 MILLIGRAM DAILY;
     Route: 048
     Dates: start: 20130706, end: 20130706
  2. PLAN B ONE-STEP [Suspect]
     Dosage: 1.5 MILLIGRAM DAILY;
     Route: 048
     Dates: start: 20130708, end: 20130708
  3. KLONOPIN [Concomitant]
     Indication: ANXIETY DISORDER
  4. WELLBUTRIN [Concomitant]
     Indication: ANXIETY DISORDER

REACTIONS (1)
  - Pelvic pain [Not Recovered/Not Resolved]
